FAERS Safety Report 7686352-8 (Version None)
Quarter: 2011Q3

REPORT INFORMATION
  Report Type: 
  Country: None (occurrence: None)
  Receive Date: 20110816
  Receipt Date: 20110809
  Transmission Date: 20111222
  Serious: Yes (Other)
  Sender: FDA-Public Use
  Company Number: JP-GLAXOSMITHKLINE-B0726791A

PATIENT
  Sex: Female
  Weight: 41 kg

DRUGS (9)
  1. MEROPENEM [Concomitant]
     Indication: SEPSIS
     Dosage: 1G PER DAY
     Route: 042
     Dates: start: 20100808, end: 20100809
  2. CEFTAZIDIME SODIUM [Suspect]
     Indication: SEPSIS
     Dosage: 3G PER DAY
     Route: 042
     Dates: start: 20100810, end: 20100816
  3. CEFTAZIDIME SODIUM [Suspect]
     Dosage: 3G PER DAY
     Route: 042
     Dates: start: 20100916, end: 20100920
  4. FOSFOMYCIN SODIUM [Concomitant]
     Indication: SEPSIS
     Dosage: 3G PER DAY
     Route: 042
     Dates: start: 20100920, end: 20100923
  5. MEILAX [Concomitant]
     Dosage: 1IUAX PER DAY
     Route: 048
  6. GEMEPROST [Concomitant]
     Indication: ABORTION INDUCED
     Dosage: 3IUAX PER DAY
     Route: 067
     Dates: start: 20100924, end: 20100924
  7. CEFTAZIDIME SODIUM [Suspect]
     Dosage: 3G PER DAY
     Route: 042
     Dates: start: 20100820, end: 20100827
  8. CLINDAMYCIN HCL [Concomitant]
     Indication: SEPSIS
     Dosage: 1200MG PER DAY
     Dates: start: 20100916, end: 20100920
  9. TRAZODONE HYDROCHLORIDE [Concomitant]
     Dosage: 3IUAX PER DAY
     Route: 048

REACTIONS (2)
  - MATERNAL EXPOSURE DURING PREGNANCY [None]
  - ABORTION INDUCED [None]
